FAERS Safety Report 6463968-8 (Version None)
Quarter: 2009Q4

REPORT INFORMATION
  Report Type: 
  Country: None (occurrence: None)
  Receive Date: 20091201
  Receipt Date: 20091121
  Transmission Date: 20100525
  Serious: Yes (Life-Threatening, Hospitalization)
  Sender: FDA-Public Use
  Company Number: CA-ROCHE-670603

PATIENT
  Age: 53 Year
  Sex: Male
  Weight: 110 kg

DRUGS (17)
  1. TAMIFLU [Suspect]
     Indication: H1N1 INFLUENZA
     Route: 048
     Dates: start: 20091106, end: 20091116
  2. TAMIFLU [Suspect]
     Route: 048
     Dates: start: 20091116, end: 20091120
  3. TAMIFLU [Suspect]
     Route: 048
     Dates: start: 20091120
  4. PANTOPRAZOLE [Concomitant]
     Route: 042
     Dates: start: 20091101
  5. PIPERACILLIN AND TAZOBACTAM [Concomitant]
     Route: 042
     Dates: start: 20091101
  6. FLUCONAZOLE [Concomitant]
     Route: 042
     Dates: start: 20091101
  7. VANCOMYCIN [Concomitant]
     Route: 042
     Dates: start: 20091101
  8. VANCOMYCIN [Concomitant]
     Route: 042
     Dates: start: 20091121
  9. VASOPRESSIN [Concomitant]
     Route: 042
  10. PHENYLEPHRINE [Concomitant]
  11. HEPARIN [Concomitant]
  12. NOREPINEPHRINE BITARTRATE [Concomitant]
  13. MIDAZOLAM HCL [Concomitant]
  14. FUROSEMIDE [Concomitant]
  15. FENTANYL-100 [Concomitant]
  16. DOBUTAMINE HCL [Concomitant]
  17. AMIODARONE HCL [Concomitant]

REACTIONS (2)
  - ACUTE RESPIRATORY DISTRESS SYNDROME [None]
  - UPPER RESPIRATORY TRACT INFECTION [None]
